FAERS Safety Report 13403434 (Version 1)
Quarter: 2017Q2

REPORT INFORMATION
  Report Type: Spontaneous
  Country: US (occurrence: US)
  Receive Date: 20170404
  Receipt Date: 20170404
  Transmission Date: 20170830
  Serious: Yes (Other)
  Sender: FDA-Public Use
  Company Number: US-AMGEN-USASP2017048277

PATIENT
  Age: 44 Year
  Sex: Female

DRUGS (1)
  1. ETANERCEPT [Suspect]
     Active Substance: ETANERCEPT
     Indication: RHEUMATOID ARTHRITIS
     Dosage: 50 MG, QWK
     Route: 058
     Dates: start: 2002

REACTIONS (3)
  - Peripheral venous disease [Recovering/Resolving]
  - Necrobiosis lipoidica diabeticorum [Recovering/Resolving]
  - Beta haemolytic streptococcal infection [Recovered/Resolved]
